FAERS Safety Report 24451196 (Version 2)
Quarter: 2025Q4

REPORT INFORMATION
  Report Type: Spontaneous
  Country: US (occurrence: US)
  Receive Date: 20241017
  Receipt Date: 20251230
  Transmission Date: 20260117
  Serious: No
  Sender: MYLAN
  Company Number: US-MYLANLABS-2024M1093878

PATIENT
  Age: 68 Year
  Sex: Female

DRUGS (4)
  1. XANAX [Suspect]
     Active Substance: ALPRAZOLAM
     Indication: Anxiety
     Dosage: 0.5 MILLIGRAM, TID (THREE TIMES A DAY AS NEEDED
     Route: 061
     Dates: start: 20240404
  2. XANAX [Suspect]
     Active Substance: ALPRAZOLAM
     Dosage: 0.5 MILLIGRAM, TID (THREE TIMES A DAY AS NEEDED
     Route: 048
     Dates: start: 20240404
  3. XANAX [Suspect]
     Active Substance: ALPRAZOLAM
     Dosage: 0.5 MILLIGRAM, TID (THREE TIMES A DAY AS NEEDED
     Route: 048
     Dates: start: 20240404
  4. XANAX [Suspect]
     Active Substance: ALPRAZOLAM
     Dosage: 0.5 MILLIGRAM, TID (THREE TIMES A DAY AS NEEDED
     Route: 061
     Dates: start: 20240404

REACTIONS (1)
  - Off label use [Unknown]

NARRATIVE: CASE EVENT DATE: 20240404
